FAERS Safety Report 20486602 (Version 1)
Quarter: 2022Q1

REPORT INFORMATION
  Report Type: Report from Study
  Country: IL (occurrence: IL)
  Receive Date: 20220217
  Receipt Date: 20220217
  Transmission Date: 20220423
  Serious: Yes (Death, Other)
  Sender: FDA-Public Use
  Company Number: IL-TAKEDA-2022TUS010805

PATIENT
  Age: 68 Year
  Sex: Female
  Weight: 58 kg

DRUGS (7)
  1. GLASSIA [Suspect]
     Active Substance: .ALPHA.1-PROTEINASE INHIBITOR HUMAN
     Indication: Acute graft versus host disease
     Dosage: 90 MILLIGRAM/KILOGRAM
     Route: 042
     Dates: start: 20220118, end: 20220118
  2. GLASSIA [Suspect]
     Active Substance: .ALPHA.1-PROTEINASE INHIBITOR HUMAN
     Indication: Acute graft versus host disease
     Dosage: 90 MILLIGRAM/KILOGRAM
     Route: 042
     Dates: start: 20220118, end: 20220118
  3. GLASSIA [Suspect]
     Active Substance: .ALPHA.1-PROTEINASE INHIBITOR HUMAN
     Dosage: 30 MILLIGRAM/KILOGRAM
     Route: 065
     Dates: start: 20220120
  4. GLASSIA [Suspect]
     Active Substance: .ALPHA.1-PROTEINASE INHIBITOR HUMAN
     Dosage: 30 MILLIGRAM/KILOGRAM
     Route: 065
     Dates: start: 20220120
  5. SOLU-MEDROL [Concomitant]
     Active Substance: METHYLPREDNISOLONE SODIUM SUCCINATE
  6. PROGRAF [Concomitant]
     Active Substance: TACROLIMUS
  7. RUXOLITINIB PHOSPHATE [Concomitant]
     Active Substance: RUXOLITINIB PHOSPHATE

REACTIONS (3)
  - Bronchopulmonary aspergillosis [Fatal]
  - Pulmonary mucormycosis [Fatal]
  - Off label use [Unknown]
